FAERS Safety Report 5020605-7 (Version None)
Quarter: 2006Q2

REPORT INFORMATION
  Report Type: 
  Country: None (occurrence: None)
  Receive Date: 20060602
  Receipt Date: 20060519
  Transmission Date: 20061013
  Serious: Yes (Other)
  Sender: FDA-Public Use
  Company Number: 430131K05USA

PATIENT
  Age: 39 Year
  Sex: Male

DRUGS (1)
  1. NOVANTRONE [Suspect]
     Indication: MULTIPLE SCLEROSIS
     Dates: start: 20050101, end: 20050701

REACTIONS (1)
  - CARDIAC DISORDER [None]
